FAERS Safety Report 18980319 (Version 1)
Quarter: 2021Q1

REPORT INFORMATION
  Report Type: Other
  Country: FR (occurrence: FR)
  Receive Date: 20210308
  Receipt Date: 20210308
  Transmission Date: 20210420
  Serious: Yes (Death, Other)
  Sender: FDA-Public Use
  Company Number: FR-ROCHE-2775800

PATIENT

DRUGS (60)
  1. PEMBROLIZUMAB. [Suspect]
     Active Substance: PEMBROLIZUMAB
     Indication: CARDIAC FAILURE
  2. DURVALUMAB. [Suspect]
     Active Substance: DURVALUMAB
     Indication: VENTRICULAR ARRHYTHMIA
  3. ABATACEPT [Suspect]
     Active Substance: ABATACEPT
     Indication: CARDIAC FAILURE
  4. ATEZOLIZUMAB. [Suspect]
     Active Substance: ATEZOLIZUMAB
     Indication: VENTRICULAR ARRHYTHMIA
  5. RITUXIMAB. [Suspect]
     Active Substance: RITUXIMAB
     Indication: CONDUCTION DISORDER
  6. TOCILIZUMAB. [Suspect]
     Active Substance: TOCILIZUMAB
     Indication: EJECTION FRACTION DECREASED
     Route: 065
  7. TOCILIZUMAB. [Suspect]
     Active Substance: TOCILIZUMAB
     Indication: CARDIAC FAILURE
  8. DURVALUMAB. [Suspect]
     Active Substance: DURVALUMAB
     Indication: VENTRICULAR ARRHYTHMIA
  9. TREMELIMUMAB. [Suspect]
     Active Substance: TREMELIMUMAB
     Indication: VENTRICULAR ARRHYTHMIA
  10. INFLIXIMAB [Suspect]
     Active Substance: INFLIXIMAB
     Indication: EJECTION FRACTION DECREASED
     Route: 065
  11. ALEMTUZUMAB [Suspect]
     Active Substance: ALEMTUZUMAB
     Indication: CONDUCTION DISORDER
  12. TOCILIZUMAB. [Suspect]
     Active Substance: TOCILIZUMAB
     Indication: CONDUCTION DISORDER
  13. MYCOPHENOLATE MOFETIL. [Suspect]
     Active Substance: MYCOPHENOLATE MOFETIL
     Indication: CONDUCTION DISORDER
  14. NIVOLUMAB [Suspect]
     Active Substance: NIVOLUMAB
     Indication: EJECTION FRACTION DECREASED
     Route: 065
  15. RELATLIMAB [Suspect]
     Active Substance: RELATLIMAB
     Indication: EJECTION FRACTION DECREASED
     Route: 065
  16. ABATACEPT [Suspect]
     Active Substance: ABATACEPT
     Indication: EJECTION FRACTION DECREASED
     Route: 065
  17. ATEZOLIZUMAB. [Suspect]
     Active Substance: ATEZOLIZUMAB
     Indication: CARDIAC FAILURE
  18. RITUXIMAB. [Suspect]
     Active Substance: RITUXIMAB
     Indication: VENTRICULAR ARRHYTHMIA
  19. RITUXIMAB. [Suspect]
     Active Substance: RITUXIMAB
     Indication: CARDIAC FAILURE
  20. IPILIMUMAB [Suspect]
     Active Substance: IPILIMUMAB
     Indication: VENTRICULAR ARRHYTHMIA
  21. INFLIXIMAB [Suspect]
     Active Substance: INFLIXIMAB
     Indication: CARDIAC FAILURE
  22. ALEMTUZUMAB [Suspect]
     Active Substance: ALEMTUZUMAB
     Indication: EJECTION FRACTION DECREASED
     Route: 065
  23. TACROLIMUS. [Suspect]
     Active Substance: TACROLIMUS
     Indication: VENTRICULAR ARRHYTHMIA
  24. MYCOPHENOLATE MOFETIL. [Suspect]
     Active Substance: MYCOPHENOLATE MOFETIL
     Indication: EJECTION FRACTION DECREASED
     Route: 065
  25. PEMBROLIZUMAB. [Suspect]
     Active Substance: PEMBROLIZUMAB
     Indication: EJECTION FRACTION DECREASED
     Route: 065
  26. IPILIMUMAB [Suspect]
     Active Substance: IPILIMUMAB
     Indication: CARDIAC FAILURE
  27. RELATLIMAB [Suspect]
     Active Substance: RELATLIMAB
     Indication: VENTRICULAR ARRHYTHMIA
  28. DURVALUMAB. [Suspect]
     Active Substance: DURVALUMAB
     Indication: EJECTION FRACTION DECREASED
     Route: 065
  29. ALEMTUZUMAB [Suspect]
     Active Substance: ALEMTUZUMAB
     Indication: CARDIAC FAILURE
  30. TACROLIMUS. [Suspect]
     Active Substance: TACROLIMUS
     Indication: CONDUCTION DISORDER
  31. NIVOLUMAB [Suspect]
     Active Substance: NIVOLUMAB
     Indication: CONDUCTION DISORDER
  32. DURVALUMAB. [Suspect]
     Active Substance: DURVALUMAB
     Indication: EJECTION FRACTION DECREASED
     Route: 065
  33. DURVALUMAB. [Suspect]
     Active Substance: DURVALUMAB
     Indication: CONDUCTION DISORDER
  34. IPILIMUMAB [Suspect]
     Active Substance: IPILIMUMAB
     Indication: EJECTION FRACTION DECREASED
     Route: 065
  35. IPILIMUMAB [Suspect]
     Active Substance: IPILIMUMAB
     Indication: CONDUCTION DISORDER
  36. RELATLIMAB [Suspect]
     Active Substance: RELATLIMAB
     Indication: CARDIAC FAILURE
  37. DURVALUMAB. [Suspect]
     Active Substance: DURVALUMAB
     Indication: CONDUCTION DISORDER
  38. DURVALUMAB. [Suspect]
     Active Substance: DURVALUMAB
     Indication: CARDIAC FAILURE
  39. INFLIXIMAB [Suspect]
     Active Substance: INFLIXIMAB
     Indication: CONDUCTION DISORDER
  40. ABATACEPT [Suspect]
     Active Substance: ABATACEPT
     Indication: VENTRICULAR ARRHYTHMIA
  41. ABATACEPT [Suspect]
     Active Substance: ABATACEPT
     Indication: CONDUCTION DISORDER
  42. TACROLIMUS. [Suspect]
     Active Substance: TACROLIMUS
     Indication: EJECTION FRACTION DECREASED
     Route: 065
  43. ATEZOLIZUMAB. [Suspect]
     Active Substance: ATEZOLIZUMAB
     Indication: EJECTION FRACTION DECREASED
     Route: 065
  44. ATEZOLIZUMAB. [Suspect]
     Active Substance: ATEZOLIZUMAB
     Indication: CONDUCTION DISORDER
  45. RITUXIMAB. [Suspect]
     Active Substance: RITUXIMAB
     Indication: EJECTION FRACTION DECREASED
     Route: 065
  46. MYCOPHENOLATE MOFETIL. [Suspect]
     Active Substance: MYCOPHENOLATE MOFETIL
     Indication: CARDIAC FAILURE
  47. NIVOLUMAB [Suspect]
     Active Substance: NIVOLUMAB
     Indication: CARDIAC FAILURE
  48. RELATLIMAB [Suspect]
     Active Substance: RELATLIMAB
     Indication: CONDUCTION DISORDER
  49. ALEMTUZUMAB [Suspect]
     Active Substance: ALEMTUZUMAB
     Indication: VENTRICULAR ARRHYTHMIA
  50. TACROLIMUS. [Suspect]
     Active Substance: TACROLIMUS
     Indication: CARDIAC FAILURE
  51. TOCILIZUMAB. [Suspect]
     Active Substance: TOCILIZUMAB
     Indication: VENTRICULAR ARRHYTHMIA
  52. MYCOPHENOLATE MOFETIL. [Suspect]
     Active Substance: MYCOPHENOLATE MOFETIL
     Indication: VENTRICULAR ARRHYTHMIA
  53. NIVOLUMAB [Suspect]
     Active Substance: NIVOLUMAB
     Indication: VENTRICULAR ARRHYTHMIA
  54. PEMBROLIZUMAB. [Suspect]
     Active Substance: PEMBROLIZUMAB
     Indication: VENTRICULAR ARRHYTHMIA
  55. PEMBROLIZUMAB. [Suspect]
     Active Substance: PEMBROLIZUMAB
     Indication: CONDUCTION DISORDER
  56. DURVALUMAB. [Suspect]
     Active Substance: DURVALUMAB
     Indication: CARDIAC FAILURE
  57. TREMELIMUMAB. [Suspect]
     Active Substance: TREMELIMUMAB
     Indication: EJECTION FRACTION DECREASED
     Route: 065
  58. TREMELIMUMAB. [Suspect]
     Active Substance: TREMELIMUMAB
     Indication: CONDUCTION DISORDER
  59. TREMELIMUMAB. [Suspect]
     Active Substance: TREMELIMUMAB
     Indication: CARDIAC FAILURE
  60. INFLIXIMAB [Suspect]
     Active Substance: INFLIXIMAB
     Indication: VENTRICULAR ARRHYTHMIA

REACTIONS (13)
  - Dermatitis [Unknown]
  - Myasthenia gravis [Unknown]
  - Atrioventricular block complete [Unknown]
  - Myocarditis [Unknown]
  - Polyneuropathy [Unknown]
  - Cardiogenic shock [Unknown]
  - Ventricular arrhythmia [Unknown]
  - Cardiac death [Fatal]
  - Myositis [Unknown]
  - Arthritis [Unknown]
  - Thyroiditis [Unknown]
  - Uveitis [Unknown]
  - Ventricular tachycardia [Unknown]
